FAERS Safety Report 5911464-6 (Version None)
Quarter: 2008Q4

REPORT INFORMATION
  Report Type: 
  Country: None (occurrence: None)
  Receive Date: 20081002
  Receipt Date: 20080917
  Transmission Date: 20090506
  Serious: Yes (Other)
  Sender: FDA-Public Use
  Company Number: 2008S1015688

PATIENT
  Age: 57 Year
  Sex: Female
  Weight: 84.8226 kg

DRUGS (15)
  1. BYSTOLIC [Suspect]
     Indication: HYPERTENSION
     Dosage: 5 MG; DAILY; ORAL
     Route: 048
     Dates: start: 20080812, end: 20080815
  2. LANTUS [Concomitant]
  3. COREG [Concomitant]
  4. LANOXIN [Concomitant]
  5. LASIX [Concomitant]
  6. CRESTOR [Concomitant]
  7. SINGULAIR [Concomitant]
  8. NEXIUM [Concomitant]
  9. POTASSIUM CHLORIDE [Concomitant]
  10. METFORMIN [Concomitant]
  11. FISH OIL [Concomitant]
  12. COENZYME Q10 [Concomitant]
  13. ACTOS [Concomitant]
  14. DICLOFENAC [Concomitant]
  15. HYDROCHLOROTHIAZIDE [Concomitant]

REACTIONS (5)
  - ABDOMINAL DISTENSION [None]
  - DYSPNOEA [None]
  - FLUID RETENTION [None]
  - OEDEMA PERIPHERAL [None]
  - WEIGHT INCREASED [None]
